FAERS Safety Report 4594991-6 (Version None)
Quarter: 2005Q1

REPORT INFORMATION
  Report Type: 
  Country: None (occurrence: None)
  Receive Date: 20050223
  Receipt Date: 20050210
  Transmission Date: 20050727
  Serious: Yes (Hospitalization, Other)
  Sender: FDA-Public Use
  Company Number: 20002065311

PATIENT
  Age: 66 Year
  Sex: Female

DRUGS (6)
  1. ATORVASTATIN CALCIUM [Suspect]
     Indication: DYSLIPIDAEMIA
     Dosage: 20 MG, ORAL
     Route: 048
     Dates: start: 19990801
  2. ASPIRIN [Suspect]
     Indication: ILL-DEFINED DISORDER
     Dosage: ORAL
     Route: 048
     Dates: start: 19981101
  3. AMLODIPINE (AMLODIPINE) [Concomitant]
  4. DILTIAZEM HYDROCHLORIDE [Concomitant]
  5. PROPATYLNITRATE (PROPATYLNITRATE) [Concomitant]
  6. ATENOLOL [Concomitant]

REACTIONS (9)
  - ASTHENIA [None]
  - ATRIOVENTRICULAR BLOCK COMPLETE [None]
  - BLOOD CHOLESTEROL INCREASED [None]
  - BLOOD TRIGLYCERIDES INCREASED [None]
  - BUNDLE BRANCH BLOCK LEFT [None]
  - CHEST PAIN [None]
  - GAIT DISTURBANCE [None]
  - GROIN PAIN [None]
  - SENSATION OF FOREIGN BODY [None]
